FAERS Safety Report 18098818 (Version 2)
Quarter: 2020Q3

REPORT INFORMATION
  Report Type: Spontaneous
  Country: US (occurrence: US)
  Receive Date: 20200731
  Receipt Date: 20200807
  Transmission Date: 20201103
  Serious: Yes (Other)
  Sender: FDA-Public Use
  Company Number: US-009507513-2007USA010469

PATIENT
  Age: 40 Year
  Sex: Female

DRUGS (5)
  1. TAMOXIFEN CITRATE. [Suspect]
     Active Substance: TAMOXIFEN CITRATE
     Dosage: 20 MILLIGRAM
  2. LISINOPRIL. [Suspect]
     Active Substance: LISINOPRIL
     Indication: HYPERTENSION
     Dosage: 20 MG/ TWICE DAILY
     Route: 048
     Dates: start: 199402, end: 199402
  3. PRINIVIL [Suspect]
     Active Substance: LISINOPRIL
     Indication: HYPERTENSION
     Dosage: UNK
     Route: 048
  4. LETROZOLE. [Suspect]
     Active Substance: LETROZOLE
     Dosage: 2.5 MG/ ONCE DAILY
  5. SYNTHROID [Concomitant]
     Active Substance: LEVOTHYROXINE SODIUM

REACTIONS (9)
  - Cluster headache [Unknown]
  - Visual impairment [Unknown]
  - Headache [Recovered/Resolved]
  - Diarrhoea [Unknown]
  - Breast cancer [Unknown]
  - Abdominal pain upper [Recovered/Resolved]
  - Diarrhoea [Recovered/Resolved]
  - Arthralgia [Unknown]
  - Product availability issue [Unknown]

NARRATIVE: CASE EVENT DATE: 199402
